FAERS Safety Report 6087190-2 (Version None)
Quarter: 2009Q1

REPORT INFORMATION
  Report Type: 
  Country: None (occurrence: None)
  Receive Date: 20090219
  Receipt Date: 20090219
  Transmission Date: 20090719
  Serious: Yes (Other)
  Sender: FDA-Public Use
  Company Number: None

PATIENT
  Age: 21 Year
  Sex: Male
  Weight: 83.9154 kg

DRUGS (1)
  1. KETOTIFEN FUMARATE [Suspect]
     Indication: CONJUNCTIVITIS ALLERGIC
     Dosage: 1 DROP EACH EYE EVERY 8HOURS OPHTHALMIC
     Route: 047
     Dates: start: 20090216, end: 20090218

REACTIONS (5)
  - CONDITION AGGRAVATED [None]
  - DRUG DISPENSING ERROR [None]
  - EXPIRED DRUG ADMINISTERED [None]
  - EYE DISORDER [None]
  - OCULAR HYPERAEMIA [None]
